FAERS Safety Report 5197280-4 (Version None)
Quarter: 2007Q1

REPORT INFORMATION
  Report Type: 
  Country: None (occurrence: None)
  Receive Date: 20070103
  Receipt Date: 20061229
  Transmission Date: 20070707
  Serious: Yes (Life-Threatening)
  Sender: FDA-Public Use
  Company Number: 2006SE06978

PATIENT
  Age: 0 Year
  Sex: Female

DRUGS (1)
  1. BLOPRESS TABLETS 4 [Suspect]
     Indication: CARDIAC FAILURE CHRONIC
     Route: 064
     Dates: start: 20061101, end: 20061201

REACTIONS (8)
  - CAESAREAN SECTION [None]
  - DIALYSIS [None]
  - DRUG EXPOSURE DURING PREGNANCY [None]
  - NEONATAL ASPHYXIA [None]
  - NEONATAL HYPOTENSION [None]
  - PLACENTAL DISORDER [None]
  - PREMATURE BABY [None]
  - RENAL IMPAIRMENT NEONATAL [None]
